FAERS Safety Report 20925177 (Version 1)
Quarter: 2022Q2

REPORT INFORMATION
  Report Type: Spontaneous
  Country: CN (occurrence: CN)
  Receive Date: 20220607
  Receipt Date: 20220607
  Transmission Date: 20220720
  Serious: Yes (Other)
  Sender: FDA-Public Use
  Company Number: CN-PFIZER INC-202200798312

PATIENT
  Age: 7 Year
  Sex: Male
  Weight: 29.5 kg

DRUGS (1)
  1. AZITHROMYCIN [Suspect]
     Active Substance: AZITHROMYCIN
     Indication: Pneumonia
     Dosage: 0.2 G, 1X/DAY
     Route: 041
     Dates: start: 20220528, end: 20220531

REACTIONS (5)
  - Lip swelling [Recovering/Resolving]
  - Rash [Recovering/Resolving]
  - Drug hypersensitivity [Recovering/Resolving]
  - Pruritus [Recovering/Resolving]
  - Tachypnoea [Recovering/Resolving]

NARRATIVE: CASE EVENT DATE: 20220531
